FAERS Safety Report 16181119 (Version 6)
Quarter: 2020Q4

REPORT INFORMATION
  Report Type: Spontaneous
  Country: US (occurrence: US)
  Receive Date: 20190410
  Receipt Date: 20201204
  Transmission Date: 20210113
  Serious: Yes (Other)
  Sender: FDA-Public Use
  Company Number: US-ASTRAZENECA-2018SF22609

PATIENT
  Age: 17715 Day
  Sex: Female
  Weight: 139.3 kg

DRUGS (99)
  1. GLIMEPIRIDE. [Concomitant]
     Active Substance: GLIMEPIRIDE
  2. METFORMIN [Concomitant]
     Active Substance: METFORMIN HYDROCHLORIDE
     Indication: DIABETES MELLITUS
  3. CIPROFLOXACIN. [Concomitant]
     Active Substance: CIPROFLOXACIN
     Indication: DRUG HYPERSENSITIVITY
     Dates: start: 200907, end: 201605
  4. BUMEX [Concomitant]
     Active Substance: BUMETANIDE
     Indication: DIURETIC THERAPY
     Dates: start: 2012
  5. PEPCID [Concomitant]
     Active Substance: FAMOTIDINE
  6. PRAVACHOL [Concomitant]
     Active Substance: PRAVASTATIN SODIUM
  7. TRAZODONE HYDROCHLORIDE. [Concomitant]
     Active Substance: TRAZODONE HYDROCHLORIDE
  8. PROMETHAZINE HYDROCHLORIDE. [Concomitant]
     Active Substance: PROMETHAZINE HYDROCHLORIDE
  9. SULFAMETHOXAZOLE-TRIMETHOPRIM [Concomitant]
     Active Substance: SULFAMETHOXAZOLE\TRIMETHOPRIM
  10. HYDROXYZINE HYDROCHLORIDE. [Concomitant]
     Active Substance: HYDROXYZINE HYDROCHLORIDE
  11. LACTULOSE. [Concomitant]
     Active Substance: LACTULOSE
  12. AMMONIUM LACTATE. [Concomitant]
     Active Substance: AMMONIUM LACTATE
  13. AMLODIPINE BESYLATE. [Concomitant]
     Active Substance: AMLODIPINE BESYLATE
  14. NEXIUM [Suspect]
     Active Substance: ESOMEPRAZOLE MAGNESIUM
     Indication: GASTROOESOPHAGEAL REFLUX DISEASE
     Route: 048
     Dates: start: 200204, end: 200802
  15. CARISOPRODOL. [Concomitant]
     Active Substance: CARISOPRODOL
  16. FUROSEMIDE. [Concomitant]
     Active Substance: FUROSEMIDE
     Indication: DIURETIC THERAPY
     Dates: start: 200801, end: 201704
  17. TORSEMIDE. [Concomitant]
     Active Substance: TORSEMIDE
     Indication: DIURETIC THERAPY
     Dates: start: 201709, end: 201711
  18. TROPACINE. [Concomitant]
     Active Substance: TROPACINE
  19. HYDROCORTISONE ACETATE. [Concomitant]
     Active Substance: HYDROCORTISONE ACETATE
  20. ABILIFY [Concomitant]
     Active Substance: ARIPIPRAZOLE
  21. AMITIZA [Concomitant]
     Active Substance: LUBIPROSTONE
  22. CLOBETASOL PROPIONATE. [Concomitant]
     Active Substance: CLOBETASOL PROPIONATE
  23. DESONIDE. [Concomitant]
     Active Substance: DESONIDE
  24. PRILOSEC OTC [Suspect]
     Active Substance: OMEPRAZOLE MAGNESIUM
     Indication: GASTROOESOPHAGEAL REFLUX DISEASE
     Route: 048
     Dates: start: 20060419, end: 20131218
  25. MICARDIS [Concomitant]
     Active Substance: TELMISARTAN
  26. AZITHROMYCIN ANHYDROUS. [Concomitant]
     Active Substance: AZITHROMYCIN ANHYDROUS
     Indication: ANTIBIOTIC LEVEL
     Dates: start: 200811, end: 201405
  27. DIAMOX SEQUELS [Concomitant]
     Active Substance: ACETAZOLAMIDE
     Indication: ANTIBIOTIC LEVEL
     Dates: start: 2017, end: 2018
  28. LISINOPRIL. [Concomitant]
     Active Substance: LISINOPRIL
     Indication: HYPERTENSION
     Dates: start: 200812, end: 201812
  29. ALDACTONE [Concomitant]
     Active Substance: SPIRONOLACTONE
  30. IRON [Concomitant]
     Active Substance: IRON
  31. MAALOX ANTACID [Concomitant]
     Active Substance: ALUMINUM HYDROXIDE\DIMETHICONE\MAGNESIUM HYDROXIDE
  32. BACTROBAN [Concomitant]
     Active Substance: MUPIROCIN\MUPIROCIN CALCIUM
  33. LEVEMIR [Concomitant]
     Active Substance: INSULIN DETEMIR
  34. STEROID [Concomitant]
     Active Substance: UNSPECIFIED INGREDIENT
  35. SOAP [Concomitant]
     Active Substance: SOAP
  36. VIGAMOX [Concomitant]
     Active Substance: MOXIFLOXACIN HYDROCHLORIDE
  37. METANX [Concomitant]
     Active Substance: LEVOMEFOLATE CALCIUM\METHYLCOBALAMIN\PYRIDOXAL PHOSPHATE ANHYDROUS
  38. ESTRACE [Concomitant]
     Active Substance: ESTRADIOL
  39. NEXIUM [Suspect]
     Active Substance: ESOMEPRAZOLE MAGNESIUM
     Indication: GASTROOESOPHAGEAL REFLUX DISEASE
     Route: 048
     Dates: start: 20040803, end: 20101226
  40. PRILOSEC OTC [Suspect]
     Active Substance: OMEPRAZOLE MAGNESIUM
     Indication: GASTROOESOPHAGEAL REFLUX DISEASE
     Route: 048
     Dates: start: 200803, end: 201412
  41. BENADRYL [Concomitant]
     Active Substance: DIPHENHYDRAMINE HYDROCHLORIDE
  42. KEFLEX [Concomitant]
     Active Substance: CEPHALEXIN
  43. CYMBALTA [Concomitant]
     Active Substance: DULOXETINE HYDROCHLORIDE
  44. ONDANSETRON HYDROCHLORIDE. [Concomitant]
     Active Substance: ONDANSETRON HYDROCHLORIDE
  45. FROVA [Concomitant]
     Active Substance: FROVATRIPTAN SUCCINATE
  46. METRONIDAZOLE. [Concomitant]
     Active Substance: METRONIDAZOLE
  47. LEVOTHYROXINE SODIUM. [Concomitant]
     Active Substance: LEVOTHYROXINE SODIUM
  48. PRILOSEC [Suspect]
     Active Substance: OMEPRAZOLE MAGNESIUM
     Indication: GASTROOESOPHAGEAL REFLUX DISEASE
     Route: 048
     Dates: start: 200408, end: 201312
  49. PREVACID [Suspect]
     Active Substance: LANSOPRAZOLE
     Route: 065
     Dates: start: 200408, end: 201312
  50. OXYCONTIN [Concomitant]
     Active Substance: OXYCODONE HYDROCHLORIDE
  51. RANITIDINE. [Concomitant]
     Active Substance: RANITIDINE
  52. IPRATROPIUM [Concomitant]
     Active Substance: IPRATROPIUM
  53. BIPHEDRINE [Concomitant]
  54. GRANISETRON HYDROCHLORIDE. [Concomitant]
     Active Substance: GRANISETRON HYDROCHLORIDE
  55. COUMADIN [Concomitant]
     Active Substance: WARFARIN SODIUM
  56. LOVENOX [Concomitant]
     Active Substance: ENOXAPARIN SODIUM
  57. MIRTAZAPINE. [Concomitant]
     Active Substance: MIRTAZAPINE
  58. PRILOSEC [Suspect]
     Active Substance: OMEPRAZOLE MAGNESIUM
     Indication: GASTROOESOPHAGEAL REFLUX DISEASE
     Dosage: GENERIC
     Route: 065
     Dates: start: 201604, end: 201605
  59. CRESTOR [Concomitant]
     Active Substance: ROSUVASTATIN CALCIUM
  60. ALPRAZOLAM. [Concomitant]
     Active Substance: ALPRAZOLAM
  61. AMOXICILLIN. [Concomitant]
     Active Substance: AMOXICILLIN
     Indication: ANTIBIOTIC LEVEL
     Dates: start: 201008, end: 201204
  62. ATORVASTATIN [Concomitant]
     Active Substance: ATORVASTATIN
     Indication: BLOOD CHOLESTEROL ABNORMAL
     Dates: start: 2010
  63. DOXYCYCLINE. [Concomitant]
     Active Substance: DOXYCYCLINE
     Indication: ANTIBIOTIC LEVEL
     Dates: start: 201111, end: 201707
  64. TUMS [Concomitant]
     Active Substance: CALCIUM CARBONATE
  65. HUMALOG [Concomitant]
     Active Substance: INSULIN LISPRO
  66. COLACE [Concomitant]
     Active Substance: DOCUSATE SODIUM
  67. NASONEX [Concomitant]
     Active Substance: MOMETASONE FUROATE
  68. ACIPHEX [Concomitant]
     Active Substance: RABEPRAZOLE SODIUM
  69. SODIUM BICARBONATE. [Concomitant]
     Active Substance: SODIUM BICARBONATE
  70. NEXIUM [Suspect]
     Active Substance: ESOMEPRAZOLE MAGNESIUM
     Indication: GASTROOESOPHAGEAL REFLUX DISEASE
     Route: 048
     Dates: start: 200408, end: 201312
  71. NEXIUM [Suspect]
     Active Substance: ESOMEPRAZOLE MAGNESIUM
     Indication: GASTROOESOPHAGEAL REFLUX DISEASE
     Route: 048
     Dates: start: 20121002
  72. IBUPROFEN. [Concomitant]
     Active Substance: IBUPROFEN
  73. FISH OIL [Concomitant]
     Active Substance: FISH OIL
  74. NIZATIDINE. [Concomitant]
     Active Substance: NIZATIDINE
  75. TAGAMET [Concomitant]
     Active Substance: CIMETIDINE
  76. AQUAPHOR [Concomitant]
     Active Substance: PETROLATUM
  77. VERSED [Concomitant]
     Active Substance: MIDAZOLAM HYDROCHLORIDE
  78. OMNIPAQUE [Concomitant]
     Active Substance: IOHEXOL
  79. DIPHENOXYLATE-ATROPINE [Concomitant]
     Active Substance: ATROPINE\DIPHENOXYLATE
  80. CLONIDINE HYDROCHLORIDE. [Concomitant]
     Active Substance: CLONIDINE HYDROCHLORIDE
  81. ERYTHROMYCIN. [Concomitant]
     Active Substance: ERYTHROMYCIN
  82. TUBERCULIN NOS [Concomitant]
     Active Substance: TUBERCULIN PURIFIED PROTEIN DERIVATIVE
  83. PRILOSEC OTC [Suspect]
     Active Substance: OMEPRAZOLE MAGNESIUM
     Indication: GASTROOESOPHAGEAL REFLUX DISEASE
     Route: 048
     Dates: start: 200408, end: 201312
  84. ACTOS [Concomitant]
     Active Substance: PIOGLITAZONE HYDROCHLORIDE
  85. HYDRALAZINE [Concomitant]
     Active Substance: HYDRALAZINE HYDROCHLORIDE
     Indication: HYPERTENSION
     Dates: start: 201608
  86. LOSARTAN. [Concomitant]
     Active Substance: LOSARTAN
     Indication: HYPERTENSION
     Dates: start: 201608
  87. VANCOMYCIN [Concomitant]
     Active Substance: VANCOMYCIN
     Indication: ANTIBIOTIC LEVEL
     Dates: start: 2014, end: 2015
  88. BISACODYL. [Concomitant]
     Active Substance: BISACODYL
  89. NITROGLYCERIN. [Concomitant]
     Active Substance: NITROGLYCERIN
  90. ALBUTEROL. [Concomitant]
     Active Substance: ALBUTEROL
  91. NUBAIN [Concomitant]
     Active Substance: NALBUPHINE HYDROCHLORIDE
  92. ICAPS [Concomitant]
     Active Substance: MINERALS\VITAMINS
  93. PRECEDEX [Concomitant]
     Active Substance: DEXMEDETOMIDINE HYDROCHLORIDE
  94. PERCOCET [Concomitant]
     Active Substance: ACETAMINOPHEN\OXYCODONE HYDROCHLORIDE
  95. LUNESTA [Concomitant]
     Active Substance: ESZOPICLONE
  96. VERAMYST [Concomitant]
     Active Substance: FLUTICASONE FUROATE
  97. FLUOCINOLONE ACETONIDE. [Concomitant]
     Active Substance: FLUOCINOLONE ACETONIDE
  98. ZOSTAVAX [Concomitant]
     Active Substance: VARICELLA-ZOSTER VIRUS STRAIN OKA/MERCK LIVE ANTIGEN
  99. POLYETHYLENE GLYCOL [Concomitant]
     Active Substance: POLYETHYLENE GLYCOLS

REACTIONS (8)
  - Acute kidney injury [Not Recovered/Not Resolved]
  - Renal tubular necrosis [Unknown]
  - Chronic kidney disease [Not Recovered/Not Resolved]
  - End stage renal disease [Unknown]
  - Renal failure [Unknown]
  - Renal injury [Unknown]
  - Tubulointerstitial nephritis [Unknown]
  - Dyspepsia [Unknown]

NARRATIVE: CASE EVENT DATE: 20120509
